FAERS Safety Report 6061740-4 (Version None)
Quarter: 2009Q1

REPORT INFORMATION
  Report Type: 
  Country: None (occurrence: None)
  Receive Date: 20090202
  Receipt Date: 20090106
  Transmission Date: 20090719
  Serious: Yes (Other)
  Sender: FDA-Public Use
  Company Number: JP-PFIZER INC-2008096603

PATIENT

DRUGS (1)
  1. TOLTERODINE TARTRATE [Suspect]
     Route: 048

REACTIONS (1)
  - DYSKINESIA [None]
